FAERS Safety Report 7423189-9 (Version None)
Quarter: 2011Q2

REPORT INFORMATION
  Report Type: 
  Country: None (occurrence: None)
  Receive Date: 20110419
  Receipt Date: 20100331
  Transmission Date: 20111010
  Serious: Yes (Death, Other)
  Sender: FDA-Public Use
  Company Number: US-BAYER-201018518NA

PATIENT
  Age: 14 Year
  Sex: Male
  Weight: 48.8 kg

DRUGS (15)
  1. DOPAMINE HCL [Concomitant]
     Dosage: 4-8 MCG/KG/MINUTE
     Route: 042
     Dates: start: 20030807
  2. ACETAMINOPHEN [Concomitant]
     Dosage: 600 MG, UNK
     Route: 048
     Dates: start: 20030806
  3. DIPHENHYDRAMINE [Concomitant]
     Dosage: 45 MG, UNK
     Route: 042
     Dates: start: 20030806
  4. LASIX [Concomitant]
     Dosage: 30-45 MG
     Route: 042
     Dates: start: 20030806
  5. EPINEPHRINE [Concomitant]
     Dosage: 10-50 MCG
     Route: 042
     Dates: start: 20030807
  6. TRASYLOL [Suspect]
     Indication: VENTRICULAR ASSIST DEVICE INSERTION
     Route: 042
     Dates: start: 20030808
  7. MILRINONE [Concomitant]
     Dosage: 0.5-75MCG/KG/MIN
     Route: 042
     Dates: start: 20030807
  8. LEVOPHED [Concomitant]
     Dosage: 10 ML, UNK
     Dates: start: 20030806
  9. EPINEPHRINE [Concomitant]
     Dosage: UNK
  10. HEPARIN [Concomitant]
     Dosage: 100-500 UNITS/CC
     Route: 042
     Dates: start: 20030806
  11. NITROGLYCERIN [Concomitant]
     Dosage: UNK
     Route: 042
     Dates: start: 20030806
  12. IMMUNE GLOBULIN NOS [Concomitant]
     Dosage: UNK
     Route: 042
     Dates: start: 20030806
  13. CONTRAST MEDIA [Concomitant]
     Indication: CATHETERISATION CARDIAC
     Dosage: UNK
     Dates: start: 20030807
  14. NOREPINEPHRINE BITARTRATE [Concomitant]
     Dosage: 4 MG, UNK
     Route: 042
     Dates: start: 20030806
  15. CARDIZEM [Concomitant]
     Dosage: 3-6 MG
     Route: 042
     Dates: start: 20030806

REACTIONS (7)
  - CEREBRAL HAEMORRHAGE [None]
  - RESPIRATORY FAILURE [None]
  - HEPATIC FAILURE [None]
  - PAIN [None]
  - DEATH [None]
  - INJURY [None]
  - RENAL FAILURE [None]
